FAERS Safety Report 7433148-8 (Version None)
Quarter: 2011Q2

REPORT INFORMATION
  Report Type: 
  Country: None (occurrence: None)
  Receive Date: 20110415
  Receipt Date: 20110408
  Transmission Date: 20111010
  Serious: Yes (Other)
  Sender: FDA-Public Use
  Company Number: 2011SP016051

PATIENT
  Age: 26 Year
  Sex: Female

DRUGS (1)
  1. IMPLANON [Suspect]
     Indication: CONTRACEPTION
     Dosage: 1  DF; ;SBDE
     Route: 059
     Dates: start: 20110301

REACTIONS (4)
  - AGGRESSION [None]
  - DEPRESSION [None]
  - HYPERSEXUALITY [None]
  - FEELING ABNORMAL [None]
